FAERS Safety Report 6382795-3 (Version None)
Quarter: 2009Q3

REPORT INFORMATION
  Report Type: 
  Country: None (occurrence: None)
  Receive Date: 20090930
  Receipt Date: 20090917
  Transmission Date: 20100115
  Serious: Yes (Hospitalization)
  Sender: FDA-Public Use
  Company Number: FI-GENENTECH-290494

PATIENT
  Sex: Female

DRUGS (3)
  1. AVASTIN [Suspect]
     Indication: BREAST CANCER
     Dosage: 800 MG, UNK
     Route: 042
     Dates: start: 20090709, end: 20090820
  2. AVASTIN [Suspect]
     Dosage: 700 MG, UNK
     Route: 042
  3. DOCETAXEL [Concomitant]
     Indication: DRUG USE FOR UNKNOWN INDICATION

REACTIONS (1)
  - LEUKOENCEPHALOPATHY [None]
